FAERS Safety Report 4402845-0 (Version None)
Quarter: 2004Q3

REPORT INFORMATION
  Report Type: 
  Country: None (occurrence: None)
  Receive Date: 20040720
  Receipt Date: 20040720
  Transmission Date: 20050211
  Serious: Yes (Life-Threatening)
  Sender: FDA-Public Use
  Company Number: None

PATIENT
  Age: 78 Year
  Sex: Female
  Weight: 72.5755 kg

DRUGS (4)
  1. BACLOFEN [Suspect]
     Indication: MUSCLE RIGIDITY
     Dosage: 5 MG PO TID X 3 D , 10 MG TID X 3D, 20 MG TID X 2 D
     Route: 048
     Dates: start: 20040507, end: 20040514
  2. BACLOFEN [Suspect]
     Indication: MUSCLE SPASTICITY
     Dosage: 5 MG PO TID X 3 D , 10 MG TID X 3D, 20 MG TID X 2 D
     Route: 048
     Dates: start: 20040507, end: 20040514
  3. SINEMET [Concomitant]
  4. ZOLOFT [Concomitant]

REACTIONS (7)
  - ABNORMAL DREAMS [None]
  - COMA [None]
  - DYSPHAGIA [None]
  - HALLUCINATION [None]
  - MARKEDLY REDUCED DIETARY INTAKE [None]
  - PHYSICAL EXAMINATION ABNORMAL [None]
  - SPEECH DISORDER [None]
